FAERS Safety Report 18542639 (Version 2)
Quarter: 2020Q4

REPORT INFORMATION
  Report Type: Spontaneous
  Country: US (occurrence: US)
  Receive Date: 20201125
  Receipt Date: 20201206
  Transmission Date: 20210114
  Serious: No
  Sender: FDA-Public Use
  Company Number: US-AMGEN-USASP2020190736

PATIENT
  Age: 58 Year
  Sex: Female

DRUGS (14)
  1. DULOXETINE. [Concomitant]
     Active Substance: DULOXETINE
  2. GABAPENTIN. [Concomitant]
     Active Substance: GABAPENTIN
  3. NATURAL LAX [Concomitant]
  4. FERROUS [IRON] [Concomitant]
     Active Substance: IRON
  5. METFORMIN [Concomitant]
     Active Substance: METFORMIN HYDROCHLORIDE
  6. CARDIZEM [Concomitant]
     Active Substance: DILTIAZEM HYDROCHLORIDE
  7. LEVOTHYROXIN [Concomitant]
     Active Substance: LEVOTHYROXINE
  8. XANAX [Concomitant]
     Active Substance: ALPRAZOLAM
  9. AMITRIPTYLIN [Concomitant]
     Active Substance: AMITRIPTYLINE
  10. ECOTRIN [Concomitant]
     Active Substance: ASPIRIN
  11. OTEZLA [Suspect]
     Active Substance: APREMILAST
     Indication: MULTIPLE SCLEROSIS
     Dosage: 30 MILLIGRAM, BID
     Route: 048
     Dates: start: 20200605
  12. BACLOFEN. [Concomitant]
     Active Substance: BACLOFEN
  13. SUPER B [AMINO ACIDS NOS;MINERALS NOS;VITAMINS NOS] [Concomitant]
  14. VITAMIN D3 [Concomitant]
     Active Substance: CHOLECALCIFEROL

REACTIONS (2)
  - Off label use [Unknown]
  - Injection site reaction [Recovered/Resolved]

NARRATIVE: CASE EVENT DATE: 2020
